FAERS Safety Report 10252272 (Version 1)
Quarter: 2014Q2

REPORT INFORMATION
  Report Type: Spontaneous
  Country: US (occurrence: None)
  Receive Date: 20140620
  Receipt Date: 20140620
  Transmission Date: 20141212
  Serious: Yes (Life-Threatening, Hospitalization)
  Sender: FDA-Public Use
  Company Number: None

PATIENT
  Age: 39 Year
  Sex: Female
  Weight: 57.6 kg

DRUGS (13)
  1. BLOXIVERZ [Suspect]
     Indication: NEUROMUSCULAR BLOCKADE REVERSAL
     Route: 042
     Dates: start: 20140617
  2. GLYCOPYRROLATE [Suspect]
     Indication: NEUROMUSCULAR BLOCKADE REVERSAL
     Route: 042
     Dates: start: 20140617
  3. BUPIVACAINE/EPI [Concomitant]
  4. DEXAMETHASONE [Concomitant]
  5. FENTANYL? [Concomitant]
  6. GENTAMICIN [Concomitant]
  7. KETOROLAC [Concomitant]
  8. LIDOCAINE [Concomitant]
  9. METOCLOPRAMIDE [Concomitant]
  10. ONDANSETRON [Concomitant]
  11. PROPOLOL [Concomitant]
  12. ROCURONIUM [Concomitant]
  13. VASOPRESSIN [Concomitant]

REACTIONS (2)
  - Cardiac arrest [None]
  - Product substitution issue [None]
